FAERS Safety Report 23234768 (Version 3)
Quarter: 2023Q4

REPORT INFORMATION
  Report Type: Spontaneous
  Country: CA (occurrence: CA)
  Receive Date: 20231128
  Receipt Date: 20231205
  Transmission Date: 20240110
  Serious: Yes (Other)
  Sender: FDA-Public Use
  Company Number: CA-ADVANZ PHARMA-202211008207

PATIENT
  Age: 53 Year
  Sex: Female
  Weight: 54.422 kg

DRUGS (7)
  1. OCALIVA [Suspect]
     Active Substance: OBETICHOLIC ACID
     Indication: Primary biliary cholangitis
     Dosage: 5 MG, QD (OCALIVA)
     Route: 048
     Dates: start: 20221119, end: 20221124
  2. OCALIVA [Suspect]
     Active Substance: OBETICHOLIC ACID
     Dosage: 5 MG, QOD (EVERY SECOND DAY)
     Route: 048
     Dates: start: 20221202
  3. OCALIVA [Suspect]
     Active Substance: OBETICHOLIC ACID
     Dosage: 5 MG, QD (RESTARTED)
     Route: 048
     Dates: start: 202302
  4. OCALIVA [Suspect]
     Active Substance: OBETICHOLIC ACID
     Dosage: 10 MG, QD
     Route: 048
     Dates: start: 202303
  5. URSODIOL [Concomitant]
     Active Substance: URSODIOL
     Dosage: 500 MG, BID
  6. URSODIOL [Concomitant]
     Active Substance: URSODIOL
     Dosage: 500 MG, BID
     Route: 048
     Dates: start: 20221214
  7. BEZAFIBRATE [Concomitant]
     Active Substance: BEZAFIBRATE
     Dosage: 400 MG, QOD (SUSTAINED RELEASE)
     Route: 048

REACTIONS (24)
  - Portal hypertension [Unknown]
  - Hepatic fibrosis [Unknown]
  - Model for end stage liver disease score increased [Unknown]
  - Hepatic cirrhosis [Unknown]
  - Fatigue [Recovering/Resolving]
  - Gastritis [Unknown]
  - Blood albumin decreased [Unknown]
  - Varices oesophageal [Unknown]
  - Platelet count decreased [Recovering/Resolving]
  - Dry eye [Unknown]
  - Eye colour change [Not Recovered/Not Resolved]
  - Gamma-glutamyltransferase abnormal [Not Recovered/Not Resolved]
  - Bilirubin conjugated abnormal [Not Recovered/Not Resolved]
  - Aspartate aminotransferase abnormal [Not Recovered/Not Resolved]
  - Increased liver stiffness [Unknown]
  - Alanine aminotransferase abnormal [Not Recovered/Not Resolved]
  - Cholelithiasis [Unknown]
  - Blood alkaline phosphatase abnormal [Not Recovered/Not Resolved]
  - Jaundice [Unknown]
  - Blood bilirubin increased [Recovering/Resolving]
  - Pruritus [Recovered/Resolved]
  - Rash [Recovered/Resolved]
  - Drug ineffective [Unknown]
  - Product dose omission issue [Unknown]

NARRATIVE: CASE EVENT DATE: 20221120
